FAERS Safety Report 4586793-1 (Version None)
Quarter: 2005Q1

REPORT INFORMATION
  Report Type: 
  Country: None (occurrence: None)
  Receive Date: 20050215
  Receipt Date: 20050201
  Transmission Date: 20050727
  Serious: Yes (Hospitalization)
  Sender: FDA-Public Use
  Company Number: 207546

PATIENT
  Age: 67 Year
  Sex: Female
  Weight: 86.1834 kg

DRUGS (7)
  1. AVONEX [Suspect]
     Indication: MULTIPLE SCLEROSIS
     Dosage: 30 UG; QW; IM
     Route: 030
     Dates: start: 19980101, end: 20030101
  2. AVONEX [Suspect]
     Indication: MULTIPLE SCLEROSIS
     Dosage: 30 UG; QW; IM
     Route: 030
     Dates: start: 20030101
  3. AMITRIPTYLINE HCL [Concomitant]
  4. CLARINEX [Concomitant]
  5. EVISTA [Concomitant]
  6. FLUOXETINE HCL [Concomitant]
  7. ...... [Concomitant]

REACTIONS (8)
  - ANKLE FRACTURE [None]
  - BALANCE DISORDER [None]
  - FALL [None]
  - INFLUENZA LIKE ILLNESS [None]
  - INJECTION SITE RASH [None]
  - JOINT DISLOCATION [None]
  - RASH [None]
  - VERTIGO [None]
